FAERS Safety Report 8763183 (Version 1)
Quarter: 2012Q4

REPORT INFORMATION
  Report Type: Spontaneous
  Country: US (occurrence: None)
  Receive Date: 20120830
  Receipt Date: 20120830
  Transmission Date: 20130627
  Serious: No
  Sender: FDA-Public Use
  Company Number: None

PATIENT
  Age: 79 Year
  Sex: Male
  Weight: 87.8 kg

DRUGS (2)
  1. ATENOLOL [Suspect]
     Indication: ATRIAL FILBRILLATION
     Route: 048
     Dates: start: 20120319, end: 20120730
  2. ATENOLOL [Suspect]
     Indication: CONGESTIVE HEART FAILURE
     Route: 048
     Dates: start: 20120319, end: 20120730

REACTIONS (1)
  - Bradycardia [None]
